FAERS Safety Report 9169230 (Version 1)
Quarter: 2013Q1

REPORT INFORMATION
  Report Type: Spontaneous
  Country: HR (occurrence: HR)
  Receive Date: 20130318
  Receipt Date: 20130318
  Transmission Date: 20140127
  Serious: Yes (Other)
  Sender: FDA-Public Use
  Company Number: HR-TEVA-390327ISR

PATIENT
  Age: 72 Year
  Sex: Male

DRUGS (4)
  1. STATEX [Suspect]
     Indication: HYPERLIPIDAEMIA
     Dosage: 20 MILLIGRAM DAILY;
     Route: 048
     Dates: start: 1998, end: 20130203
  2. LACIPIL [Concomitant]
     Dosage: 4 MILLIGRAM DAILY;
     Route: 048
  3. STUGERON [Concomitant]
     Dosage: 37.5 MILLIGRAM DAILY;
     Route: 048
  4. ANDOL [Concomitant]
     Dosage: 100 MILLIGRAM DAILY;
     Route: 048

REACTIONS (4)
  - Myalgia [Not Recovered/Not Resolved]
  - Abasia [Not Recovered/Not Resolved]
  - Alopecia [Not Recovered/Not Resolved]
  - Contusion [Not Recovered/Not Resolved]
